FAERS Safety Report 10643285 (Version 1)
Quarter: 2014Q4

REPORT INFORMATION
  Report Type: Report from Study
  Country: US (occurrence: None)
  Receive Date: 20141128
  Receipt Date: 20141128
  Transmission Date: 20150529
  Serious: Yes (Hospitalization)
  Sender: FDA-Public Use
  Company Number: 2395769

PATIENT
  Age: 61 Year
  Sex: Female
  Weight: 63.5 kg

DRUGS (3)
  1. NIPENT [Suspect]
     Active Substance: PENTOSTATIN
     Indication: CHRONIC LYMPHOCYTIC LEUKAEMIA
     Dosage: 6.8 MG MILLIGRAM(S) CYCLICAL, UKNOWN
     Dates: start: 20120312, end: 20120723
  2. CYCLOPHOSPHAMIDE. [Suspect]
     Active Substance: CYCLOPHOSPHAMIDE
     Indication: CHRONIC LYMPHOCYTIC LEUKAEMIA
     Dosage: 1032 MG  MILLIGRAM (S) CYCLICAL
     Dates: start: 20120312, end: 20120723
  3. RITUXIMAB [Suspect]
     Active Substance: RITUXIMAB
     Indication: CHRONIC LYMPHOCYTIC LEUKAEMIA
     Dosage: 645 MG MILLIGRAM (S), CYCLICAL, UKNOWN
     Dates: start: 20120312, end: 20120723

REACTIONS (2)
  - Neutrophil count decreased [None]
  - Skin infection [None]

NARRATIVE: CASE EVENT DATE: 20120816
